FAERS Safety Report 11801654 (Version 1)
Quarter: 2015Q4

REPORT INFORMATION
  Report Type: Spontaneous
  Country: US (occurrence: US)
  Receive Date: 20151204
  Receipt Date: 20151204
  Transmission Date: 20160305
  Serious: No
  Sender: FDA-Public Use
  Company Number: US-JNJFOC-20151023711

PATIENT
  Sex: Male
  Weight: 79.38 kg

DRUGS (1)
  1. PROPULSID [Suspect]
     Active Substance: CISAPRIDE
     Indication: DIABETIC GASTROPARESIS
     Route: 048

REACTIONS (4)
  - Drug dose omission [Recovered/Resolved]
  - Stress [Not Recovered/Not Resolved]
  - Nausea [Recovered/Resolved]
  - Eating disorder [Recovered/Resolved]

NARRATIVE: CASE EVENT DATE: 2014
